FAERS Safety Report 5502749-6 (Version None)
Quarter: 2007Q4

REPORT INFORMATION
  Report Type: 
  Country: None (occurrence: None)
  Receive Date: 20071031
  Receipt Date: 20071019
  Transmission Date: 20080405
  Serious: Yes (Other)
  Sender: FDA-Public Use
  Company Number: JP-JNJFOC-20071005725

PATIENT
  Age: 78 Year
  Sex: Female

DRUGS (2)
  1. POLLAKISU [Suspect]
     Indication: DRUG USE FOR UNKNOWN INDICATION
     Route: 048
  2. ANTICOAGULANT [Concomitant]
     Route: 065

REACTIONS (1)
  - HAEMORRHAGE SUBCUTANEOUS [None]
